FAERS Safety Report 5763911-0 (Version None)
Quarter: 2008Q2

REPORT INFORMATION
  Report Type: 
  Country: None (occurrence: None)
  Receive Date: 20080606
  Receipt Date: 20080606
  Transmission Date: 20081010
  Serious: Yes (Other)
  Sender: FDA-Public Use
  Company Number: None

PATIENT
  Age: 54 Year
  Sex: Female
  Weight: 63.5036 kg

DRUGS (1)
  1. MEBENDAZOLE 100 MGS [Suspect]
     Indication: HELMINTHIC INFECTION
     Dosage: 1 TABLET CHEWED ONCE A WK FOR 2 WK PO
     Route: 048
     Dates: start: 20080521, end: 20080528

REACTIONS (11)
  - ABDOMINAL PAIN UPPER [None]
  - BALANCE DISORDER [None]
  - CHILLS [None]
  - DYSPNOEA [None]
  - HYPERTENSION [None]
  - NAUSEA [None]
  - NERVOUSNESS [None]
  - PYREXIA [None]
  - SWOLLEN TONGUE [None]
  - THROAT TIGHTNESS [None]
  - VOMITING [None]
